FAERS Safety Report 18469935 (Version 1)
Quarter: 2020Q4

REPORT INFORMATION
  Report Type: Spontaneous
  Country: US (occurrence: US)
  Receive Date: 20201105
  Receipt Date: 20201105
  Transmission Date: 20210114
  Serious: Yes (Hospitalization, Disabling, Other)
  Sender: FDA-Public Use
  Company Number: US-PURDUE-USA-2020-0174571

PATIENT
  Sex: Male

DRUGS (2)
  1. OXYCONTIN [Suspect]
     Active Substance: OXYCODONE HYDROCHLORIDE
     Indication: ARTHRALGIA
     Dosage: UNK
     Route: 048
  2. HEROIN [Suspect]
     Active Substance: DIAMORPHINE
     Indication: PRODUCT USED FOR UNKNOWN INDICATION
     Dosage: UNK
     Route: 065

REACTIONS (13)
  - Drug abuse [Unknown]
  - Personality change [Unknown]
  - Disturbance in attention [Unknown]
  - Illness [Unknown]
  - Pain [Unknown]
  - Hospitalisation [Unknown]
  - Euphoric mood [Unknown]
  - Emotional distress [Unknown]
  - Drug dependence [Unknown]
  - Infection [Unknown]
  - Organ failure [Unknown]
  - General physical health deterioration [Unknown]
  - Mental disorder [Unknown]
